FAERS Safety Report 25831853 (Version 1)
Quarter: 2025Q3

REPORT INFORMATION
  Report Type: Spontaneous
  Country: US (occurrence: None)
  Receive Date: 20250919
  Receipt Date: 20250919
  Transmission Date: 20251021
  Serious: Yes (Hospitalization)
  Sender: FDA-CTU
  Company Number: None

PATIENT
  Sex: Female

DRUGS (1)
  1. DASATINIB [Suspect]
     Active Substance: DASATINIB
     Indication: Breast cancer female
     Dosage: 100 MG DAILY ORAL?
     Route: 048
     Dates: start: 20241009

REACTIONS (5)
  - Dyspnoea [None]
  - Fatigue [None]
  - Dyspnoea [None]
  - Pulmonary oedema [None]
  - Therapy interrupted [None]
